FAERS Safety Report 9056263 (Version 2)
Quarter: 2013Q2

REPORT INFORMATION
  Report Type: Spontaneous
  Country: US (occurrence: US)
  Receive Date: 20130205
  Receipt Date: 20130506
  Transmission Date: 20140414
  Serious: Yes (Death, Other)
  Sender: FDA-Public Use
  Company Number: US-ASTRAZENECA-2013SE07642

PATIENT
  Age: 77 Year
  Sex: Female

DRUGS (3)
  1. FASLODEX [Suspect]
     Indication: BREAST CANCER METASTATIC
     Route: 030
     Dates: start: 20120901
  2. EXEMESTANE [Suspect]
     Indication: BREAST CANCER FEMALE
     Route: 048
  3. COUMADIN [Suspect]
     Route: 065

REACTIONS (3)
  - Death [Fatal]
  - Haemorrhage subepidermal [Recovered/Resolved]
  - Arthralgia [Not Recovered/Not Resolved]
